FAERS Safety Report 25198632 (Version 3)
Quarter: 2025Q3

REPORT INFORMATION
  Report Type: Report from Study
  Country: US (occurrence: US)
  Receive Date: 20250415
  Receipt Date: 20250710
  Transmission Date: 20251020
  Serious: Yes (Other)
  Sender: ACADIA PHARMACEUTICALS
  Company Number: US-ACADIA PHARMACEUTICALS INC.-ACA-2025-PIM-004127

PATIENT
  Sex: Female

DRUGS (12)
  1. NUPLAZID [Suspect]
     Active Substance: PIMAVANSERIN TARTRATE
     Indication: Parkinson^s disease psychosis
     Dosage: 34 MILLIGRAM, QD
     Route: 048
     Dates: start: 20250128
  2. ALIGN [Concomitant]
     Active Substance: BIFIDOBACTERIUM LONGUM SUBSP. INFANTIS
  3. ATIVAN [Concomitant]
     Active Substance: LORAZEPAM
  4. CALCIUM [Concomitant]
     Active Substance: CALCIUM
  5. DOCUSATE SODIUM [Concomitant]
     Active Substance: DOCUSATE SODIUM
  6. ESCITALOPRAM [Concomitant]
     Active Substance: ESCITALOPRAM OXALATE
  7. LEVOXYL [Concomitant]
     Active Substance: LEVOTHYROXINE SODIUM
  8. PRAMIPEXOLE [Concomitant]
     Active Substance: PRAMIPEXOLE
  9. QUETIAPINE [Concomitant]
     Active Substance: QUETIAPINE
     Dosage: 1.5 DOSAGE FORM, QD (0.5 PILL IN THE MORNING AND 1 PILL AT NIGHT)
  10. RIVASTIGMINE [Concomitant]
     Active Substance: RIVASTIGMINE
  11. SELEGILINE [Concomitant]
     Active Substance: SELEGILINE
  12. SENNOSIDES [Concomitant]
     Active Substance: SENNOSIDES

REACTIONS (4)
  - Hallucination, tactile [Unknown]
  - Hallucination [Not Recovered/Not Resolved]
  - Delusion [Not Recovered/Not Resolved]
  - Drug ineffective [Not Recovered/Not Resolved]
